FAERS Safety Report 7315973-7 (Version None)
Quarter: 2011Q1

REPORT INFORMATION
  Report Type: 
  Country: None (occurrence: None)
  Receive Date: 20110225
  Receipt Date: 20110209
  Transmission Date: 20110831
  Serious: Yes (Death, Hospitalization)
  Sender: FDA-Public Use
  Company Number: CA-SANOFI-AVENTIS-2011SA002564

PATIENT
  Age: 79 Year
  Sex: Female
  Weight: 64.5 kg

DRUGS (10)
  1. BLINDED THERAPY [Suspect]
     Route: 048
     Dates: start: 20101119, end: 20101123
  2. WARFARIN SODIUM [Concomitant]
  3. CIPROFLOXACIN [Concomitant]
  4. DRONEDARONE [Suspect]
     Route: 048
     Dates: start: 20101124, end: 20101208
  5. ALTACE [Concomitant]
  6. AMLODIPINE BESILATE [Concomitant]
  7. MOXIFLOXACIN [Concomitant]
  8. FUROSEMIDE [Concomitant]
  9. SALBUTAMOL SULFATE [Concomitant]
  10. HYDROCHLOROTHIAZIDE [Concomitant]

REACTIONS (4)
  - CARDIAC FAILURE CONGESTIVE [None]
  - ALANINE AMINOTRANSFERASE INCREASED [None]
  - DYSPNOEA [None]
  - DEATH [None]
